FAERS Safety Report 8461004-5 (Version None)
Quarter: 2012Q2

REPORT INFORMATION
  Report Type: 
  Country: None (occurrence: None)
  Receive Date: 20120625
  Receipt Date: 20120613
  Transmission Date: 20120825
  Serious: No
  Sender: FDA-Public Use
  Company Number: US-BIOGENIDEC-2012BI021247

PATIENT
  Sex: Male

DRUGS (1)
  1. TYSABRI [Suspect]
     Indication: MULTIPLE SCLEROSIS
     Route: 042
     Dates: start: 20070306

REACTIONS (11)
  - PAIN IN EXTREMITY [None]
  - FATIGUE [None]
  - MUSCULAR WEAKNESS [None]
  - NAUSEA [None]
  - EYE PRURITUS [None]
  - DIZZINESS [None]
  - VOMITING [None]
  - LACRIMATION INCREASED [None]
  - AGITATION [None]
  - CHEST PAIN [None]
  - DRUG INEFFECTIVE [None]
